FAERS Safety Report 9731597 (Version 1)
Quarter: 2013Q4

REPORT INFORMATION
  Report Type: Spontaneous
  Country: US (occurrence: None)
  Receive Date: 20131204
  Receipt Date: 20131204
  Transmission Date: 20140711
  Serious: Yes (Death, Other)
  Sender: FDA-Public Use
  Company Number: None

PATIENT
  Age: 28 Year
  Sex: Male
  Weight: 84.37 kg

DRUGS (2)
  1. CIPROFLOXACIN 500MG [Suspect]
     Indication: BACTERIAL INFECTION
     Dosage: 1 PILL, TWICE DAILY, TAKEN BY MOUTH
     Dates: start: 20131003, end: 20131013
  2. PERCOCET [Suspect]
     Indication: PAIN
     Dosage: 1, AS NEEDED, TAKEN BY MOUTH
     Dates: start: 20131003, end: 20131006

REACTIONS (9)
  - Chromaturia [None]
  - Confusional state [None]
  - Malaise [None]
  - Agitation [None]
  - Insomnia [None]
  - Nightmare [None]
  - Hallucination [None]
  - Paranoia [None]
  - Hypoaesthesia [None]
